FAERS Safety Report 6703071-2 (Version None)
Quarter: 2010Q2

REPORT INFORMATION
  Report Type: 
  Country: None (occurrence: None)
  Receive Date: 20100427
  Receipt Date: 20100407
  Transmission Date: 20101027
  Serious: Yes (Hospitalization)
  Sender: FDA-Public Use
  Company Number: 2010SP020215

PATIENT
  Age: 32 Year
  Sex: Female

DRUGS (4)
  1. HUMAN CHORIONIC GONADOTROPHIN [Suspect]
     Indication: OVULATION INDUCTION
  2. HUMAN FOLLICLE-STIMULATION HORMONE (OTHERR MFR) (HUMAN FSH) (UROFOLLIT [Suspect]
     Indication: IN VITRO FERTILISATION
  3. MENOTROPHIN (OTHER MFR) (MENOTROPHIN /06269502/) [Suspect]
     Indication: IN VITRO FERTILISATION
  4. HUMAN CHRONIC GONADOTROPHIN (OTHER MFR) (CHRONIC GONADOTRIOPHIN) [Suspect]
     Indication: OVULATION INDUCTION

REACTIONS (2)
  - CEREBRAL INFARCTION [None]
  - OVARIAN HYPERSTIMULATION SYNDROME [None]
